FAERS Safety Report 12873974 (Version 1)
Quarter: 2016Q4

REPORT INFORMATION
  Report Type: Spontaneous
  Country: JP (occurrence: JP)
  Receive Date: 20161021
  Receipt Date: 20161021
  Transmission Date: 20170207
  Serious: Yes (Other)
  Sender: FDA-Public Use
  Company Number: JP-PFIZER INC-2016489176

PATIENT
  Age: 67 Year
  Sex: Male

DRUGS (6)
  1. G LASTA [Concomitant]
     Active Substance: PEGFILGRASTIM
     Dosage: UNK
  2. 5-FU [Concomitant]
     Active Substance: FLUOROURACIL
     Dosage: UNK
     Dates: start: 20140708, end: 20160223
  3. LENOGRASTIM [Concomitant]
     Active Substance: LENOGRASTIM
     Dosage: UNK
  4. CAMPTO [Suspect]
     Active Substance: IRINOTECAN
     Indication: PANCREATIC CARCINOMA
     Dosage: UNK, 1X/DAY
     Route: 041
     Dates: start: 20140708, end: 20160223
  5. ELPLAT [Suspect]
     Active Substance: OXALIPLATIN
     Indication: PANCREATIC CARCINOMA
     Dosage: UNK, 1X/DAY
     Route: 041
     Dates: start: 20140708, end: 20160223
  6. LEVOFOLINATE CALCIUM [Concomitant]
     Active Substance: LEVOLEUCOVORIN CALCIUM
     Dosage: UNK
     Dates: start: 20140708, end: 20160223

REACTIONS (2)
  - Neuropathy peripheral [Unknown]
  - Neutrophil count decreased [Unknown]
